FAERS Safety Report 9423973 (Version 5)
Quarter: 2015Q4

REPORT INFORMATION
  Report Type: Spontaneous
  Country: BR (occurrence: BR)
  Receive Date: 20130729
  Receipt Date: 20151013
  Transmission Date: 20160305
  Serious: Yes (Other)
  Sender: FDA-Public Use
  Company Number: BR-AMGEN-BRASP2012042470

PATIENT
  Age: 72 Year
  Sex: Male
  Weight: 92 kg

DRUGS (12)
  1. ENBREL [Suspect]
     Active Substance: ETANERCEPT
     Indication: RHEUMATOID ARTHRITIS
     Dosage: 50 MG, ONCE WEEKLY
     Route: 065
     Dates: start: 20120619
  2. AMLODIPINE [Concomitant]
     Active Substance: AMLODIPINE BESYLATE
     Indication: RHEUMATOID ARTHRITIS
     Dosage: UNK
  3. METREXATO [Concomitant]
     Dosage: 8 TABLETS (UNSPECIFIED DOSE), ONCE WEEKLY
     Dates: start: 2010
  4. ENALAPRIL [Concomitant]
     Active Substance: ENALAPRIL
     Dosage: 1 TABLET (UNSPECIFIED DOSE), 2X/DAY
     Route: 048
  5. AMLODIPINE BESILATE [Concomitant]
     Active Substance: AMLODIPINE BESYLATE
     Indication: BLOOD PRESSURE ABNORMAL
     Dosage: UNK
  6. LOSARTAN. [Concomitant]
     Active Substance: LOSARTAN
     Dosage: UNSPECIFIED DOSE, 2X/DAY
  7. FOLIC ACID. [Concomitant]
     Active Substance: FOLIC ACID
     Indication: ANAEMIA
     Dosage: 2 TABLETS (UNSPECIFIED DOSE), WEEKLY
     Dates: start: 2010
  8. METREXATO [Concomitant]
     Dosage: 10 TABLETS STRENGTH 2.5MG (25 MG), 1X/WEEK
     Dates: start: 201306
  9. PREDNISONE. [Concomitant]
     Active Substance: PREDNISONE
     Dosage: 0.25 MG DAILY
  10. METHOTREXATE [Concomitant]
     Active Substance: METHOTREXATE
     Dosage: 10 TABLETS OF 2.5MG (25 MG), DAILY
  11. FINASTERIDE. [Concomitant]
     Active Substance: FINASTERIDE
     Dosage: UNSPECIFIED DOSE, 1X/DAY
  12. AAS [Concomitant]
     Active Substance: ASPIRIN
     Dosage: 1 TABLET DAILY

REACTIONS (4)
  - Urinary tract infection [Recovered/Resolved]
  - Cardiac disorder [Recovered/Resolved]
  - Cardiomegaly [Recovered/Resolved]
  - Platelet count decreased [Recovered/Resolved]

NARRATIVE: CASE EVENT DATE: 2012
